FAERS Safety Report 7320998-1 (Version None)
Quarter: 2011Q1

REPORT INFORMATION
  Report Type: 
  Country: None (occurrence: None)
  Receive Date: 20110228
  Receipt Date: 20110223
  Transmission Date: 20110831
  Serious: Yes (Life-Threatening)
  Sender: FDA-Public Use
  Company Number: JP-ASTRAZENECA-2011SE09246

PATIENT
  Age: 80 Year
  Sex: Female

DRUGS (2)
  1. ETIZOLAM [Concomitant]
     Dosage: DOSE UNKNOWN
     Route: 048
  2. XYLOCAINE [Suspect]
     Indication: LOCAL ANAESTHESIA
     Dosage: DOSE UNKNOWN
     Route: 061
     Dates: start: 20110214, end: 20110214

REACTIONS (1)
  - SHOCK [None]
